FAERS Safety Report 22312626 (Version 2)
Quarter: 2023Q2

REPORT INFORMATION
  Report Type: Report from Study
  Country: CN (occurrence: CN)
  Receive Date: 20230512
  Receipt Date: 20230519
  Transmission Date: 20230721
  Serious: Yes (Life-Threatening, Other)
  Sender: FDA-Public Use
  Company Number: CN-BRISTOL-MYERS SQUIBB COMPANY-2023-038909

PATIENT
  Age: 72 Year
  Sex: Male

DRUGS (1)
  1. VIDAZA [Suspect]
     Active Substance: AZACITIDINE
     Indication: Myelodysplastic syndrome
     Dosage: ONCE A DAY
     Route: 058
     Dates: start: 20190724, end: 20190730

REACTIONS (2)
  - Pyrexia [Recovered/Resolved]
  - Myelosuppression [Recovering/Resolving]

NARRATIVE: CASE EVENT DATE: 20190808
